FAERS Safety Report 5911456-7 (Version None)
Quarter: 2008Q4

REPORT INFORMATION
  Report Type: 
  Country: None (occurrence: None)
  Receive Date: 20081007
  Receipt Date: 20080925
  Transmission Date: 20090506
  Serious: Yes (Other)
  Sender: FDA-Public Use
  Company Number: US-PFIZER INC-2008081673

PATIENT
  Age: 48 Year
  Sex: Female

DRUGS (3)
  1. CHANTIX [Suspect]
  2. ANTIHYPERTENSIVES [Concomitant]
  3. DRUG, UNSPECIFIED [Concomitant]

REACTIONS (5)
  - FEAR [None]
  - IRRITABILITY [None]
  - PARANOIA [None]
  - PERSONALITY CHANGE [None]
  - SLEEP DISORDER [None]
